FAERS Safety Report 9984322 (Version 1)
Quarter: 2014Q1

REPORT INFORMATION
  Report Type: Report from Study
  Country: US (occurrence: US)
  Receive Date: 20140304
  Receipt Date: 20140304
  Transmission Date: 20141002
  Serious: No
  Sender: FDA-Public Use
  Company Number: US-ABBVIE-13P-163-1086695-00

PATIENT
  Age: 43 Year
  Sex: Female

DRUGS (8)
  1. HUMIRA [Suspect]
     Indication: PSORIATIC ARTHROPATHY
  2. MAXZIDE [Concomitant]
     Indication: DIURETIC THERAPY
     Dosage: PILL
  3. LOVENOX GENERIC [Concomitant]
     Indication: THROMBOSIS
     Dosage: 100 MG/ML
  4. CALCITRIOL [Concomitant]
     Indication: VITAMIN SUPPLEMENTATION
  5. ATENOLOL [Concomitant]
     Indication: BLOOD PRESSURE MANAGEMENT
     Dosage: 1/2 TABLET
  6. TRICOR [Concomitant]
     Indication: BLOOD CHOLESTEROL INCREASED
  7. LEVOTHYROXINE [Concomitant]
     Indication: HYPERTHYROIDISM
  8. ZOLOFT [Concomitant]
     Indication: ANXIETY

REACTIONS (5)
  - Injection site pain [Not Recovered/Not Resolved]
  - Injection site urticaria [Not Recovered/Not Resolved]
  - Injection site mass [Not Recovered/Not Resolved]
  - Injection site pruritus [Unknown]
  - Injection site erythema [Not Recovered/Not Resolved]
